FAERS Safety Report 17504975 (Version 2)
Quarter: 2020Q1

REPORT INFORMATION
  Report Type: Report from Study
  Country: IT (occurrence: IT)
  Receive Date: 20200305
  Receipt Date: 20200309
  Transmission Date: 20200409
  Serious: Yes (Hospitalization)
  Sender: FDA-Public Use
  Company Number: IT-MYLANLABS-2020M1024038

PATIENT
  Age: 67 Year
  Sex: Male

DRUGS (7)
  1. METFORMINA DOC [Concomitant]
  2. BRUFEN [Suspect]
     Active Substance: IBUPROFEN
     Indication: ARTHRALGIA
     Dosage: 600 MILLIGRAM, QD
     Route: 048
     Dates: start: 20200101, end: 20200114
  3. TORVAST [Concomitant]
     Active Substance: ATORVASTATIN
  4. OMEPRAZOLO DOC [Concomitant]
  5. LANTUS [Concomitant]
     Active Substance: INSULIN GLARGINE
  6. DICLOFENAC [Suspect]
     Active Substance: DICLOFENAC
     Indication: ARTHRALGIA
     Dosage: 75 MILLIGRAM, QD
     Route: 030
     Dates: start: 20200101, end: 20200114
  7. CARDIOASPIRIN [Suspect]
     Active Substance: ASPIRIN
     Indication: THROMBOSIS PROPHYLAXIS
     Dosage: 100 MILLIGRAM, QD
     Route: 048
     Dates: start: 20160101, end: 20200114

REACTIONS (5)
  - Substance abuse [Recovering/Resolving]
  - Gastric disorder [Recovering/Resolving]
  - Anaemia [Recovering/Resolving]
  - Melaena [Recovering/Resolving]
  - Intentional product misuse [Unknown]

NARRATIVE: CASE EVENT DATE: 20200114
